FAERS Safety Report 12883033 (Version 1)
Quarter: 2016Q4

REPORT INFORMATION
  Report Type: Spontaneous
  Country: US (occurrence: US)
  Receive Date: 20161025
  Receipt Date: 20161025
  Transmission Date: 20170207
  Serious: No
  Sender: FDA-Public Use
  Company Number: US-FRESENIUS KABI-FK201608110

PATIENT

DRUGS (1)
  1. DIPRIVAN [Suspect]
     Active Substance: PROPOFOL
     Indication: ANALGESIC THERAPY
     Route: 065

REACTIONS (2)
  - Drug effect decreased [Unknown]
  - Drug ineffective [Unknown]
